FAERS Safety Report 6532223-X (Version None)
Quarter: 2010Q1

REPORT INFORMATION
  Report Type: 
  Country: None (occurrence: None)
  Receive Date: 20100108
  Receipt Date: 20100104
  Transmission Date: 20100710
  Serious: Yes (Death)
  Sender: FDA-Public Use
  Company Number: US-PFIZER INC-2010001384

PATIENT
  Age: 33 Year
  Sex: Female

DRUGS (3)
  1. ALPRAZOLAM [Suspect]
     Route: 065
  2. COCAINE [Suspect]
     Route: 065
  3. MARIJUANA [Suspect]
     Route: 065

REACTIONS (3)
  - CARDIAC ARREST [None]
  - DRUG ABUSE [None]
  - RESPIRATORY ARREST [None]
